FAERS Safety Report 11097706 (Version 1)
Quarter: 2015Q2

REPORT INFORMATION
  Report Type: Spontaneous
  Country: US (occurrence: US)
  Receive Date: 20150507
  Receipt Date: 20150507
  Transmission Date: 20150821
  Serious: No
  Sender: FDA-Public Use
  Company Number: US-PFIZER INC-2015144251

PATIENT
  Age: 68 Year
  Sex: Female
  Weight: 102 kg

DRUGS (1)
  1. SPIRONOLACTONE. [Suspect]
     Active Substance: SPIRONOLACTONE
     Dosage: 25 MG, 3 TIMES A WEEK

REACTIONS (3)
  - Dysphagia [Unknown]
  - Dry mouth [Unknown]
  - Panic attack [Unknown]
